FAERS Safety Report 25013567 (Version 2)
Quarter: 2025Q2

REPORT INFORMATION
  Report Type: Spontaneous
  Country: US (occurrence: US)
  Receive Date: 20250226
  Receipt Date: 20250402
  Transmission Date: 20250717
  Serious: No
  Sender: BRISTOL MYERS SQUIBB
  Company Number: US-BRISTOL-MYERS SQUIBB COMPANY-2025-029119

PATIENT
  Age: 72 Year
  Sex: Female
  Weight: 70.58 kg

DRUGS (1)
  1. REVLIMID [Suspect]
     Active Substance: LENALIDOMIDE
     Indication: Plasma cell myeloma
     Route: 048
     Dates: start: 20250201

REACTIONS (6)
  - Fatigue [Unknown]
  - Product dose omission issue [Unknown]
  - Constipation [Unknown]
  - Vision blurred [Recovering/Resolving]
  - Dizziness [Recovering/Resolving]
  - Product administration interrupted [Unknown]
